FAERS Safety Report 10372040 (Version 5)
Quarter: 2015Q2

REPORT INFORMATION
  Report Type: Report from Study
  Country: US (occurrence: US)
  Receive Date: 20140808
  Receipt Date: 20150512
  Transmission Date: 20150821
  Serious: Yes (Other)
  Sender: FDA-Public Use
  Company Number: US-VERTEX PHARMACEUTICALS INC-2014-003390

PATIENT
  Age: 6 Year
  Sex: Male

DRUGS (8)
  1. PREDNISONE. [Concomitant]
     Active Substance: PREDNISONE
     Dosage: 7.5 MG, QD
     Dates: start: 20120309, end: 20120314
  2. NASONEX [Concomitant]
     Active Substance: MOMETASONE FUROATE
     Indication: RHINITIS
     Dosage: 50 ?G, BID PRN
     Dates: start: 20111219
  3. PREDNISONE. [Concomitant]
     Active Substance: PREDNISONE
     Dosage: 2.5 MG, QD
     Dates: start: 20120321, end: 20120326
  4. KALYDECO [Suspect]
     Active Substance: IVACAFTOR
     Indication: CYSTIC FIBROSIS
     Dosage: 150 MG, Q12H
     Route: 065
     Dates: start: 20130716
  5. PREDNISONE. [Concomitant]
     Active Substance: PREDNISONE
     Dosage: 5 MG, QD
     Dates: start: 20120315, end: 20120320
  6. PREDNISONE. [Concomitant]
     Active Substance: PREDNISONE
     Dosage: 15 MG, SINGLE
     Dates: start: 20120308
  7. NASONEX [Concomitant]
     Active Substance: MOMETASONE FUROATE
     Indication: NASAL CONGESTION
  8. AQUADEKS [Concomitant]
     Indication: VITAMIN SUPPLEMENTATION
     Dosage: 1 CAP, QD
     Route: 048

REACTIONS (1)
  - Cataract congenital [Not Recovered/Not Resolved]

NARRATIVE: CASE EVENT DATE: 20140501
